FAERS Safety Report 7721279-4 (Version None)
Quarter: 2011Q3

REPORT INFORMATION
  Report Type: 
  Country: None (occurrence: None)
  Receive Date: 20110831
  Receipt Date: 20110818
  Transmission Date: 20111222
  Serious: Yes (Hospitalization, Other)
  Sender: FDA-Public Use
  Company Number: PHHY2011FR74395

PATIENT
  Sex: Male

DRUGS (2)
  1. CERTICAN [Suspect]
     Indication: LIVER TRANSPLANT
     Dosage: 1 MG, BID
  2. CERTICAN [Suspect]
     Dosage: 2 MG, BID
     Route: 048

REACTIONS (24)
  - ASPARTATE AMINOTRANSFERASE INCREASED [None]
  - BILOMA [None]
  - BLOOD PRESSURE INCREASED [None]
  - EPIDIDYMITIS [None]
  - PNEUMONIA CYTOMEGALOVIRAL [None]
  - CHOLESTASIS [None]
  - EJECTION FRACTION DECREASED [None]
  - BILIRUBIN CONJUGATED INCREASED [None]
  - HYDROCELE [None]
  - PYREXIA [None]
  - LIVER FUNCTION TEST ABNORMAL [None]
  - BLOOD ALKALINE PHOSPHATASE INCREASED [None]
  - VIRAL MYOCARDITIS [None]
  - ALANINE AMINOTRANSFERASE INCREASED [None]
  - COAGULATION FACTOR V LEVEL INCREASED [None]
  - PERICARDIAL EFFUSION [None]
  - GAMMA-GLUTAMYLTRANSFERASE INCREASED [None]
  - TRICUSPID VALVE INCOMPETENCE [None]
  - BLOOD BILIRUBIN INCREASED [None]
  - PROTHROMBIN TIME RATIO DECREASED [None]
  - PROTHROMBIN LEVEL DECREASED [None]
  - BILIARY DILATATION [None]
  - PELVIC FLUID COLLECTION [None]
  - LIVER TRANSPLANT REJECTION [None]
